FAERS Safety Report 18526641 (Version 1)
Quarter: 2020Q4

REPORT INFORMATION
  Report Type: Spontaneous
  Country: US (occurrence: US)
  Receive Date: 20201119
  Receipt Date: 20201119
  Transmission Date: 20210114
  Serious: Yes (Hospitalization)
  Sender: FDA-Public Use
  Company Number: None

PATIENT
  Sex: Female

DRUGS (1)
  1. NORDITROPIN [Suspect]
     Active Substance: SOMATROPIN
     Indication: PITUITARY-DEPENDENT CUSHING^S SYNDROME
     Route: 058
     Dates: start: 20200403

REACTIONS (1)
  - Electrolyte imbalance [None]
